FAERS Safety Report 6429967-7 (Version None)
Quarter: 2009Q4

REPORT INFORMATION
  Report Type: 
  Country: None (occurrence: None)
  Receive Date: 20091103
  Receipt Date: 20091019
  Transmission Date: 20100525
  Serious: Yes (Life-Threatening, Hospitalization)
  Sender: FDA-Public Use
  Company Number: 02100-JPN-07-0172

PATIENT
  Age: 79 Year
  Sex: Male
  Weight: 66.6 kg

DRUGS (12)
  1. PLETAL [Suspect]
     Indication: CEREBRAL INFARCTION
     Dosage: 100 MG, BID, ORAL
     Route: 048
     Dates: start: 20060531, end: 20071030
  2. ZANTAC (RANITIDINE HYDROCHLORIDE) TABLET [Concomitant]
  3. GRAMALIL (TIAPRIDE HYDROCHLORIDE) POWDER [Concomitant]
  4. LASIX [Concomitant]
  5. FLIVAS (NAFTOPIDIL) TABLET [Concomitant]
  6. VOLLEY:SOL. (BUTENAFINE HYDROCHLORIDE) [Concomitant]
  7. BLADDERON (FLAVOXATE HYDROCHLORIDE) TABLET [Concomitant]
  8. NOVOLIN 30R (INSULIN INJECTION, BIPHASIC) INJECTION [Concomitant]
  9. FLIVAS OD (NAFTOPIDIL) TABLET [Concomitant]
  10. PRUSENNID (SENNOSIDE) TABLET [Concomitant]
  11. ACUATIM (NADIFLOXACIN) CREAM [Concomitant]
  12. TOPSYM (FLUOCINONIDE) CREAM [Concomitant]

REACTIONS (19)
  - ACUTE MYOCARDIAL INFARCTION [None]
  - ANGINA UNSTABLE [None]
  - ATRIOVENTRICULAR BLOCK FIRST DEGREE [None]
  - BLOOD UREA INCREASED [None]
  - BUNDLE BRANCH BLOCK RIGHT [None]
  - CARDIAC FAILURE [None]
  - CEREBRAL INFARCTION [None]
  - CHOLECYSTITIS [None]
  - CONDITION AGGRAVATED [None]
  - CORONARY ARTERY STENOSIS [None]
  - DIABETES MELLITUS [None]
  - DIABETES MELLITUS INADEQUATE CONTROL [None]
  - GAIT DISTURBANCE [None]
  - GASTROINTESTINAL HAEMORRHAGE [None]
  - HAEMOGLOBIN DECREASED [None]
  - HYPOGLYCAEMIA [None]
  - ILEUS [None]
  - PNEUMONIA ASPIRATION [None]
  - PSEUDOMEMBRANOUS COLITIS [None]
